FAERS Safety Report 6221141-2 (Version None)
Quarter: 2009Q2

REPORT INFORMATION
  Report Type: 
  Country: None (occurrence: None)
  Receive Date: 20090610
  Receipt Date: 20090603
  Transmission Date: 20091009
  Serious: Yes (Death, Other)
  Sender: FDA-Public Use
  Company Number: FI-ROCHE-634486

PATIENT
  Sex: Female

DRUGS (11)
  1. PEGASYS [Suspect]
     Route: 058
     Dates: start: 20090213
  2. PEGASYS [Suspect]
     Dosage: DOSE REDUCED.
     Route: 058
     Dates: start: 20090325
  3. COPEGUS [Suspect]
     Route: 048
     Dates: start: 20090213
  4. PANACOD [Concomitant]
     Indication: FIBROMYALGIA
     Dosage: DOSE:500MG+30MG
     Route: 048
  5. OPAMOX [Concomitant]
     Route: 048
  6. ZOLPIDEM TARTRATE [Concomitant]
     Dosage: REPORTED DRUG: SOMNAR (ZOLIDEM)
  7. ATARAX [Concomitant]
     Dosage: REPORTED DRUG: ATARAZ
  8. TIZANIDINE HCL [Concomitant]
  9. DOLAN [Concomitant]
  10. MELATONIN [Concomitant]
  11. XANOR [Concomitant]

REACTIONS (3)
  - DEATH [None]
  - NEUTROPHIL COUNT DECREASED [None]
  - SLEEP DISORDER [None]
